FAERS Safety Report 7657072-0 (Version None)
Quarter: 2011Q3

REPORT INFORMATION
  Report Type: 
  Country: None (occurrence: None)
  Receive Date: 20110804
  Receipt Date: 20100702
  Transmission Date: 20111222
  Serious: No
  Sender: FDA-Public Use
  Company Number: US-GLAXOSMITHKLINE-A0868401A

PATIENT
  Age: 77 Year
  Sex: Female

DRUGS (5)
  1. SYNTHROID [Concomitant]
  2. IPRATROPIUM BROMIDE [Concomitant]
  3. BLOOD PRESSURE MEDICATION [Concomitant]
  4. ANTI-CHOLESTEROL MEDICATION [Concomitant]
  5. ADVAIR DISKUS 100/50 [Suspect]
     Indication: LUNG DISORDER
     Dosage: 2PUFF TWICE PER DAY
     Route: 055

REACTIONS (3)
  - EYE DISORDER [None]
  - EYE MOVEMENT DISORDER [None]
  - ABNORMAL SENSATION IN EYE [None]
